FAERS Safety Report 9254702 (Version 1)
Quarter: 2013Q2

REPORT INFORMATION
  Report Type: Spontaneous
  Country: DE (occurrence: DE)
  Receive Date: 20130425
  Receipt Date: 20130425
  Transmission Date: 20140414
  Serious: Yes (Other)
  Sender: FDA-Public Use
  Company Number: DE-PFIZER INC-2013017246

PATIENT
  Age: 60 Year
  Sex: Female

DRUGS (4)
  1. XALATAN [Suspect]
     Indication: IRITIS
     Dosage: 1 DROP EVERY DAY
     Route: 047
     Dates: start: 20100818, end: 2013
  2. AZARGA [Suspect]
     Indication: GLAUCOMA
     Dosage: UNK
     Route: 047
     Dates: start: 20091109, end: 20100217
  3. DIAMOX [Suspect]
     Indication: GLAUCOMA
     Dosage: UNK
     Route: 048
  4. L-THYROXIN [Concomitant]
     Dosage: 1 DAY

REACTIONS (26)
  - Constipation [Not Recovered/Not Resolved]
  - Alopecia [Recovering/Resolving]
  - Local swelling [Recovered/Resolved]
  - Pain of skin [Recovering/Resolving]
  - Pruritus [Not Recovered/Not Resolved]
  - Erythema [Unknown]
  - Pain of skin [Not Recovered/Not Resolved]
  - Hyperaesthesia [Not Recovered/Not Resolved]
  - Iris hypopigmentation [Not Recovered/Not Resolved]
  - Madarosis [Not Recovered/Not Resolved]
  - Spider naevus [Not Recovered/Not Resolved]
  - Maculopathy [Unknown]
  - Tachycardia [Unknown]
  - Panic attack [Unknown]
  - Skin disorder [Unknown]
  - Skin burning sensation [Unknown]
  - Eye colour change [Unknown]
  - Pain [Unknown]
  - Hypotension [Unknown]
  - Depression [Unknown]
  - Fatigue [Unknown]
  - Peripheral coldness [Unknown]
  - Peripheral coldness [Unknown]
  - Peripheral coldness [Unknown]
  - Myalgia [Unknown]
  - Asthma [Unknown]
